FAERS Safety Report 17968665 (Version 1)
Quarter: 2020Q3

REPORT INFORMATION
  Report Type: Spontaneous
  Country: DE (occurrence: DE)
  Receive Date: 20200701
  Receipt Date: 20200701
  Transmission Date: 20201103
  Serious: Yes (Hospitalization)
  Sender: FDA-Public Use
  Company Number: DE-MYLANLABS-2020M1059222

PATIENT
  Age: 3 Year
  Sex: Female
  Weight: 19 kg

DRUGS (3)
  1. INFECTODEXAKRUPP [Concomitant]
     Indication: URTICARIA
     Dosage: DAILY DOSE: 8 ML MILLILITRE(S) EVERY DAYS
     Route: 048
     Dates: start: 20200228, end: 20200228
  2. KLACID [Suspect]
     Active Substance: CLARITHROMYCIN
     Indication: UPPER RESPIRATORY TRACT INFECTION
     Dosage: UNK
     Route: 048
     Dates: start: 20200228, end: 20200228
  3. CETIRIZIN [Concomitant]
     Active Substance: CETIRIZINE HYDROCHLORIDE
     Indication: URTICARIA
     Dosage: DAILY DOSE: 7.5 ML MILLILITRE(S) EVERY DAYS 3 SEPARATED DOSES
     Route: 048
     Dates: start: 20200227

REACTIONS (2)
  - Skin oedema [Recovering/Resolving]
  - Urticaria [Recovering/Resolving]

NARRATIVE: CASE EVENT DATE: 20200227
